FAERS Safety Report 7795001-X (Version None)
Quarter: 2011Q4

REPORT INFORMATION
  Report Type: 
  Country: None (occurrence: None)
  Receive Date: 20111004
  Receipt Date: 20110929
  Transmission Date: 20120403
  Serious: Yes (Death)
  Sender: FDA-Public Use
  Company Number: PHHY2011ES86643

PATIENT
  Age: 53 Year
  Sex: Male

DRUGS (4)
  1. CYCLOSPORINE [Suspect]
     Indication: HISTIOCYTOSIS HAEMATOPHAGIC
     Dosage: 50 NG/ML (LOW DOSES )
  2. METHYLPREDNISOLONE [Concomitant]
     Indication: CYTOMEGALOVIRUS INFECTION
     Dosage: UNK UKN, UNK
  3. POLYGAM S/D [Concomitant]
     Indication: CYTOMEGALOVIRUS INFECTION
     Dosage: 30 G, EVERY 48 HOURS
     Route: 042
  4. GANCICLOVIR [Concomitant]
     Indication: CYTOMEGALOVIRUS INFECTION
     Dosage: 50 MG, EVERY 12 HOURS
     Route: 042

REACTIONS (7)
  - HISTIOCYTOSIS HAEMATOPHAGIC [None]
  - GENERAL PHYSICAL HEALTH DETERIORATION [None]
  - NEUROLOGICAL DECOMPENSATION [None]
  - CYTOMEGALOVIRUS INFECTION [None]
  - LUNG INFECTION [None]
  - CYTOMEGALOVIRUS GASTROINTESTINAL INFECTION [None]
  - MULTI-ORGAN FAILURE [None]
